FAERS Safety Report 6922097-7 (Version None)
Quarter: 2010Q3

REPORT INFORMATION
  Report Type: 
  Country: None (occurrence: None)
  Receive Date: 20100812
  Receipt Date: 20100601
  Transmission Date: 20110219
  Serious: Yes (Hospitalization, Other)
  Sender: FDA-Public Use
  Company Number: PHHY2010US26155

PATIENT
  Sex: Female

DRUGS (5)
  1. RECLAST [Suspect]
     Indication: OSTEOPOROSIS
     Dosage: 5 MG YEARLY
     Route: 042
     Dates: start: 20100312
  2. CRESTOR [Concomitant]
  3. CARVEDILOL [Concomitant]
  4. BENAZEPRIL [Concomitant]
  5. ACTOS [Concomitant]

REACTIONS (11)
  - ARTHRALGIA [None]
  - ATRIAL FIBRILLATION [None]
  - DEHYDRATION [None]
  - DIZZINESS [None]
  - DYSPNOEA [None]
  - LETHARGY [None]
  - MYALGIA [None]
  - NAUSEA [None]
  - PALLOR [None]
  - RENAL FAILURE [None]
  - VISUAL IMPAIRMENT [None]
